FAERS Safety Report 14661154 (Version 1)
Quarter: 2018Q1

REPORT INFORMATION
  Report Type: Other
  Country: GB (occurrence: GB)
  Receive Date: 20180320
  Receipt Date: 20180320
  Transmission Date: 20180509
  Serious: Yes (Disabling, Other)
  Sender: FDA-Public Use
  Company Number: GB-ASTELLAS-2018US013053

PATIENT
  Age: 83 Year
  Sex: Male

DRUGS (2)
  1. TAMSULOSIN [Concomitant]
     Active Substance: TAMSULOSIN
     Indication: PRODUCT USED FOR UNKNOWN INDICATION
     Route: 065
     Dates: start: 20180228
  2. SOLIFENACIN [Suspect]
     Active Substance: SOLIFENACIN
     Indication: CONSTIPATION
     Route: 048

REACTIONS (3)
  - Condition aggravated [Unknown]
  - Off label use [Unknown]
  - Lower urinary tract symptoms [Recovering/Resolving]

NARRATIVE: CASE EVENT DATE: 20180215
